FAERS Safety Report 23595024 (Version 2)
Quarter: 2024Q1

REPORT INFORMATION
  Report Type: Spontaneous
  Country: AU (occurrence: AU)
  Receive Date: 20240305
  Receipt Date: 20240313
  Transmission Date: 20240409
  Serious: Yes (Hospitalization, Other)
  Sender: FDA-Public Use
  Company Number: None

PATIENT
  Sex: Male
  Weight: 2.71 kg

DRUGS (16)
  1. LINEZOLID [Suspect]
     Active Substance: LINEZOLID
     Indication: Mycobacterial infection
     Dosage: UNK (20 MG/ML SUSPENSION)
     Route: 048
  2. LINEZOLID [Suspect]
     Active Substance: LINEZOLID
     Indication: Congenital tuberculosis
     Dosage: UNK (600 MG/300 ML INJECTION)
     Route: 042
  3. LINEZOLID [Suspect]
     Active Substance: LINEZOLID
     Dosage: 15 MILLIGRAM/KILOGRAM IV/PO IN 2 DIVIDED DOSES; FROM 3RD WEEK OF TREATMENT TO 11TH WEEK OF TREATMENT
     Route: 065
     Dates: start: 20220202
  4. LINEZOLID [Suspect]
     Active Substance: LINEZOLID
     Dosage: 20 MILLIGRAM/KILOGRAM IN 2 DIVIDED DOSES; FROM 12TH WEEK TO 6 MONTHS OF TREATMENT
     Route: 048
     Dates: start: 20220202
  5. LINEZOLID [Suspect]
     Active Substance: LINEZOLID
     Dosage: 15 MILLIGRAM/KILOGRAM, QD (FROM 12 MONTHS OF TREATMENT TO 13 MONTHS OF TREATMENT)
     Route: 048
  6. LINEZOLID [Suspect]
     Active Substance: LINEZOLID
     Dosage: 15 MILLIGRAM/KILOGRAM, QD (EVERY 1 DAY)
     Route: 065
  7. CYCLOSERINE [Concomitant]
     Active Substance: CYCLOSERINE
     Indication: Mycobacterial infection
     Dosage: 20 MILLIGRAM/KILOGRAM (250 MG CAPSULE DISPERSED IN 10 ML WFI) IN 2 DIVIDED DOSES; FROM 3 WEEKS OF TR
     Route: 048
  8. CYCLOSERINE [Concomitant]
     Active Substance: CYCLOSERINE
     Indication: Congenital tuberculosis
  9. PROTIONAMIDE [Concomitant]
     Active Substance: PROTIONAMIDE
     Indication: Congenital tuberculosis
     Dosage: 20 MILLIGRAM/KILOGRAM (IN 2 DIVIDED DOSES FROM 3RD WEEK OF TREATMENT TO 7TH WEEK OF TREATMENT)
     Route: 048
  10. PROTIONAMIDE [Concomitant]
     Active Substance: PROTIONAMIDE
     Indication: Mycobacterial infection
  11. PYRIDOXINE [Concomitant]
     Active Substance: PYRIDOXINE
     Indication: Congenital tuberculosis
     Dosage: 10 MILLIGRAM, QD (EVERY 1 DAY)
     Route: 042
  12. PYRIDOXINE [Concomitant]
     Active Substance: PYRIDOXINE
     Indication: Mycobacterial infection
     Dosage: 10 MILLIGRAM, QD (EVERY 1 DAY)
     Route: 042
  13. PYRIDOXINE [Concomitant]
     Active Substance: PYRIDOXINE
     Dosage: UNK (PO: 10 MG/ML SUSPENSION, IV: 100 MG/2 ML INJECTION)
     Route: 065
  14. OXYGEN [Concomitant]
     Active Substance: OXYGEN
     Indication: Congenital tuberculosis
     Dosage: UNK
     Route: 045
  15. OXYGEN [Concomitant]
     Active Substance: OXYGEN
     Indication: Mycobacterial infection
  16. OXYGEN [Concomitant]
     Active Substance: OXYGEN
     Indication: Chronic respiratory disease

REACTIONS (3)
  - Deafness unilateral [Not Recovered/Not Resolved]
  - Deafness neurosensory [Not Recovered/Not Resolved]
  - Neutropenia [Recovered/Resolved]

NARRATIVE: CASE EVENT DATE: 20220404
